FAERS Safety Report 7036184-9 (Version None)
Quarter: 2010Q4

REPORT INFORMATION
  Report Type: 
  Country: None (occurrence: None)
  Receive Date: 20101008
  Receipt Date: 20100719
  Transmission Date: 20110411
  Serious: No
  Sender: FDA-Public Use
  Company Number: US-BRISTOL-MYERS SQUIBB COMPANY-15198195

PATIENT
  Age: 84 Year
  Sex: Female
  Weight: 68 kg

DRUGS (4)
  1. AVAPRO [Suspect]
     Indication: CEREBROVASCULAR ACCIDENT
     Dates: start: 20020101
  2. CIPROFLOXACIN [Suspect]
     Indication: URINARY TRACT INFECTION
  3. PLAVIX [Suspect]
     Indication: CEREBROVASCULAR ACCIDENT
     Dates: start: 20020101
  4. TYLENOL (CAPLET) [Concomitant]
     Dosage: OCCASIONAL TYLENOL ARTHRITIS AT NIGHTTIME

REACTIONS (5)
  - DIZZINESS [None]
  - DRY MOUTH [None]
  - DYSGEUSIA [None]
  - GAIT DISTURBANCE [None]
  - TEETH BRITTLE [None]
